FAERS Safety Report 23976195 (Version 1)
Quarter: 2024Q2

REPORT INFORMATION
  Report Type: Spontaneous
  Country: US (occurrence: US)
  Receive Date: 20240614
  Receipt Date: 20240614
  Transmission Date: 20240715
  Serious: No
  Sender: FDA-Public Use
  Company Number: US-LEX-000309

PATIENT
  Sex: Female

DRUGS (3)
  1. INPEFA [Suspect]
     Active Substance: SOTAGLIFLOZIN
     Indication: Type 2 diabetes mellitus
     Route: 048
     Dates: start: 20240312, end: 20240528
  2. METFORMIN [Concomitant]
     Active Substance: METFORMIN HYDROCHLORIDE
  3. MOUNJARO [Concomitant]
     Active Substance: TIRZEPATIDE

REACTIONS (1)
  - Urinary tract infection [Unknown]

NARRATIVE: CASE EVENT DATE: 20240101
